FAERS Safety Report 8573062 (Version 2)
Quarter: 2014Q1

REPORT INFORMATION
  Report Type: Spontaneous
  Country: US (occurrence: None)
  Receive Date: 20120323
  Receipt Date: 20130305
  Transmission Date: 20141002
  Serious: Yes (Other)
  Sender: FDA-Public Use
  Company Number: 163-21880-11091319

PATIENT
  Age: 78 Year
  Sex: Male
  Weight: 80.7 kg

DRUGS (2)
  1. REVLIMID [Suspect]
     Indication: PLASMA CELL MYELOMA
     Dosage: 10 MG, 1 IN 1 D, PO
     Route: 048
     Dates: start: 20110822
  2. REVLIMID [Suspect]

REACTIONS (7)
  - Prostate cancer [None]
  - Micturition urgency [None]
  - Pruritus [None]
  - Rash [None]
  - Fatigue [None]
  - Infection [None]
  - Hypertonic bladder [None]
